FAERS Safety Report 8302024-0 (Version None)
Quarter: 2012Q2

REPORT INFORMATION
  Report Type: 
  Country: None (occurrence: None)
  Receive Date: 20120402
  Receipt Date: 20120316
  Transmission Date: 20120825
  Serious: Yes (Life-Threatening)
  Sender: FDA-Public Use
  Company Number: 2012031431

PATIENT
  Age: 70 Year
  Sex: Female
  Weight: 66.4 kg

DRUGS (24)
  1. ANCEF [Concomitant]
  2. HYDROCODONE BITARTRATE [Concomitant]
  3. VICODIN [Concomitant]
  4. ASPIRIN [Concomitant]
  5. FISH OIL (FISH OIL) [Concomitant]
  6. BISACODYL [Concomitant]
  7. BERINERT [Suspect]
     Indication: HEREDITARY ANGIOEDEMA
     Dosage: (1250 IU, 4 ML/MIN (TOTAL DOSE 28 ML) INTRAVENOUS (NOT OTHERWISE SPECIFIED))
     Route: 042
     Dates: start: 20120123, end: 20120123
  8. CELEBREX [Concomitant]
  9. BENICAR [Concomitant]
  10. IRBESARTAN [Concomitant]
  11. NASONEX [Concomitant]
  12. DOCUSATE SODIUM (DOCUSATE SODIUM) [Concomitant]
  13. EPHEDRINE SUL CAP [Concomitant]
  14. MAGNESIUM HYDROXIDE TAB [Concomitant]
  15. IBUPROFEN [Concomitant]
  16. DIPHENHYDRAMINE HCL [Concomitant]
  17. DANAZOL [Concomitant]
  18. OCUVITE (OCUVITE /01053801/) [Concomitant]
  19. ZOFRAN (ONANSETRON) [Concomitant]
  20. MULTIVITAMIN (ACCOMIN MULTIVITAMIN) [Concomitant]
  21. TUMS (TUMS /00193601/) [Concomitant]
  22. NALOXONE [Concomitant]
  23. VITAMIN D [Concomitant]
  24. HYDROMORPHONE HCL [Concomitant]

REACTIONS (5)
  - FAT EMBOLISM [None]
  - HEMIPLEGIA [None]
  - APHASIA [None]
  - TRANSIENT ISCHAEMIC ATTACK [None]
  - VIITH NERVE PARALYSIS [None]
